FAERS Safety Report 8842216 (Version 1)
Quarter: 2012Q4

REPORT INFORMATION
  Report Type: 
  Country: US (occurrence: US)
  Receive Date: 20121016
  Receipt Date: 20121016
  Transmission Date: 20130627
  Serious: Yes (Death, Hospitalization)
  Sender: FDA-Public Use
  Company Number: US-BAYER-2012-105250

PATIENT
  Age: 21 Year
  Sex: Female
  Weight: 74.38 kg

DRUGS (3)
  1. YAZ [Suspect]
  2. BLOOD PRESSURE MEDICATION (NOS) [Concomitant]
  3. XANAX [Concomitant]

REACTIONS (2)
  - Pulmonary infarction [Fatal]
  - Pulmonary artery thrombosis [Fatal]
